FAERS Safety Report 14671738 (Version 1)
Quarter: 2018Q1

REPORT INFORMATION
  Report Type: Spontaneous
  Country: DK (occurrence: DK)
  Receive Date: 20180323
  Receipt Date: 20180323
  Transmission Date: 20180509
  Serious: Yes (Death)
  Sender: FDA-Public Use
  Company Number: DK-ALEMBIC PHARMACUETICALS LIMITED-2018SCAL000205

PATIENT

DRUGS (1)
  1. QUETIAPINE FUMARATE. [Suspect]
     Active Substance: QUETIAPINE FUMARATE
     Indication: MENTAL DISORDER
     Dosage: 800-1040 MG/KG  PER DAY
     Route: 065

REACTIONS (2)
  - Toxicity to various agents [Unknown]
  - Cardiovascular disorder [Fatal]
